FAERS Safety Report 7768196-1 (Version None)
Quarter: 2011Q3

REPORT INFORMATION
  Report Type: 
  Country: None (occurrence: None)
  Receive Date: 20110922
  Receipt Date: 20110922
  Transmission Date: 20111222
  Serious: Yes (Disabling, Other)
  Sender: FDA-Public Use
  Company Number: None

PATIENT
  Age: 10 Year
  Sex: Male
  Weight: 27.215 kg

DRUGS (1)
  1. CLONAZEPAM [Suspect]
     Indication: ANXIETY
     Dosage: .5
     Route: 048
     Dates: start: 20110915, end: 20110919

REACTIONS (1)
  - EYE MOVEMENT DISORDER [None]
